FAERS Safety Report 16167862 (Version 1)
Quarter: 2019Q2

REPORT INFORMATION
  Report Type: Spontaneous
  Country: FR (occurrence: FR)
  Receive Date: 20190408
  Receipt Date: 20190408
  Transmission Date: 20190711
  Serious: Yes (Other)
  Sender: FDA-Public Use
  Company Number: FR-SUN PHARMACEUTICAL INDUSTRIES LTD-2019RR-203438

PATIENT
  Age: 32 Year
  Sex: Female

DRUGS (4)
  1. MISOONE 400 MICROGRAMMES, COMPRIME [Suspect]
     Active Substance: MISOPROSTOL
     Indication: ABORTION INDUCED
     Dosage: 2 TABLETS
     Route: 002
     Dates: start: 20190220, end: 20190220
  2. IBUPROFEN. [Suspect]
     Active Substance: IBUPROFEN
     Indication: PAIN
     Dosage: NON RENSEIGNEE
     Route: 048
     Dates: start: 20190220, end: 20190220
  3. MISOONE 400 MICROGRAMMES, COMPRIME [Suspect]
     Active Substance: MISOPROSTOL
     Indication: ABORTION INDUCED
     Dosage: UNK
     Route: 048
     Dates: start: 20190220, end: 20190220
  4. VOGALENE [Suspect]
     Active Substance: METOPIMAZINE
     Indication: PAIN
     Dosage: NON RENSEIGNEE
     Route: 048
     Dates: start: 20190220, end: 20190220

REACTIONS (6)
  - Incorrect dose administered [Unknown]
  - Oropharyngeal oedema [Recovered/Resolved]
  - Dysphagia [Recovered/Resolved]
  - Incorrect route of product administration [Unknown]
  - Tongue oedema [Recovered/Resolved]
  - Angioedema [Recovering/Resolving]

NARRATIVE: CASE EVENT DATE: 20190220
